FAERS Safety Report 9433618 (Version 1)
Quarter: 2013Q3

REPORT INFORMATION
  Report Type: Spontaneous
  Country: US (occurrence: US)
  Receive Date: 20130731
  Receipt Date: 20130731
  Transmission Date: 20140515
  Serious: No
  Sender: FDA-Public Use
  Company Number: US-TEVA-421820USA

PATIENT
  Age: 69 Year
  Sex: Male
  Weight: 86.26 kg

DRUGS (5)
  1. NUVIGIL [Suspect]
     Indication: DEPRESSION
     Dates: start: 20130722
  2. NUVIGIL [Suspect]
     Indication: ANXIETY
  3. LAMICTAL [Concomitant]
     Indication: DEPRESSION
  4. LISINOPRIL [Concomitant]
     Indication: HYPERTENSION
  5. SYNTHROID [Concomitant]
     Indication: HYPOTHYROIDISM

REACTIONS (7)
  - Feeling jittery [Not Recovered/Not Resolved]
  - Depressed mood [Not Recovered/Not Resolved]
  - Nausea [Not Recovered/Not Resolved]
  - Tremor [Not Recovered/Not Resolved]
  - Agitation [Not Recovered/Not Resolved]
  - Anxiety [Not Recovered/Not Resolved]
  - Off label use [Unknown]
